FAERS Safety Report 17850918 (Version 4)
Quarter: 2020Q4

REPORT INFORMATION
  Report Type: Report from Study
  Country: GB (occurrence: GB)
  Receive Date: 20200602
  Receipt Date: 20201027
  Transmission Date: 20210113
  Serious: Yes (Other)
  Sender: FDA-Public Use
  Company Number: NVSC2019GB052564

PATIENT
  Sex: Male

DRUGS (1)
  1. HYRIMOZ [Suspect]
     Active Substance: ADALIMUMAB-ADAZ
     Indication: ANKYLOSING SPONDYLITIS
     Dosage: 40 MG, Q2W (40MG/0.8ML, EOW)
     Route: 058
     Dates: start: 20191022

REACTIONS (12)
  - Varicose vein [Not Recovered/Not Resolved]
  - Product dose omission issue [Unknown]
  - Injection site haemorrhage [Unknown]
  - Injection site mass [Recovered/Resolved]
  - Injection site pain [Recovered/Resolved]
  - Drug ineffective [Unknown]
  - Mood swings [Unknown]
  - Vein rupture [Unknown]
  - Insomnia [Unknown]
  - Back pain [Unknown]
  - Fatigue [Unknown]
  - Arthralgia [Unknown]
